FAERS Safety Report 9507361 (Version 1)
Quarter: 2013Q3

REPORT INFORMATION
  Report Type: Report from Study
  Country: JP (occurrence: JP)
  Receive Date: 20130909
  Receipt Date: 20130909
  Transmission Date: 20140515
  Serious: Yes (Death, Life-Threatening, Hospitalization)
  Sender: FDA-Public Use
  Company Number: JP-GENZYME-THYM-1004097

PATIENT
  Age: 78 Year
  Sex: Male
  Weight: 54 kg

DRUGS (23)
  1. THYMOGLOBULIN [Suspect]
     Indication: APLASTIC ANAEMIA
     Dosage: 200 MG, QD
     Route: 065
     Dates: start: 20120528, end: 20120529
  2. THYMOGLOBULIN [Suspect]
     Dosage: 200 MG, QD
     Route: 065
     Dates: start: 20120531, end: 20120602
  3. BACTRAMIN [Suspect]
     Indication: INFECTION PROPHYLAXIS
     Dosage: 1 TABLET
     Route: 065
     Dates: start: 20120601, end: 20120616
  4. BACTRAMIN [Suspect]
     Dosage: UNK
     Route: 065
     Dates: start: 20120628, end: 20120730
  5. CRAVIT [Suspect]
     Indication: INFECTION PROPHYLAXIS
     Dosage: 500 MG, UNK
     Route: 065
     Dates: start: 20120601, end: 20120615
  6. CRAVIT [Suspect]
     Dosage: 500 MG, UNK
     Route: 065
     Dates: start: 20120628, end: 20120730
  7. VIRUHEXAL [Suspect]
     Indication: RASH GENERALISED
     Dosage: 750 MG, QD
     Route: 065
     Dates: start: 20120625, end: 20120627
  8. MEROPEN [Suspect]
     Indication: FEBRILE NEUTROPENIA
     Dosage: .5 G, BID
     Route: 065
     Dates: start: 20120807, end: 20120809
  9. CEFEPIME [Suspect]
     Indication: SEPTIC SHOCK
     Dosage: 1 G, UNK
     Route: 065
     Dates: start: 20120614, end: 20120627
  10. CEFEPIME [Suspect]
     Indication: FEBRILE NEUTROPENIA
     Dosage: 1 G, UNK
     Route: 065
     Dates: start: 20120803, end: 20120807
  11. PRIDOL [Concomitant]
     Indication: PROPHYLAXIS
     Dosage: 125 MG, UNK
     Route: 065
     Dates: start: 20120528, end: 20120602
  12. NEUTROGIN [Concomitant]
     Indication: INFECTION PROPHYLAXIS
     Dosage: 100 MCG, UNK
     Route: 065
     Dates: start: 20120528, end: 20120811
  13. GASTER [Concomitant]
     Indication: PROPHYLAXIS AGAINST GASTROINTESTINAL ULCER
     Dosage: 40 MG, UNK
     Route: 065
     Dates: start: 20120603, end: 20120615
  14. GASTER [Concomitant]
     Dosage: 20 MG, UNK
     Route: 065
     Dates: start: 20120615, end: 20120627
  15. ITRIZOLE [Concomitant]
     Indication: INFECTION PROPHYLAXIS
     Dosage: 100 MG, UNK
     Route: 065
     Dates: start: 20120601, end: 20120615
  16. ITRIZOLE [Concomitant]
     Dosage: 100 MG, UNK
     Route: 065
     Dates: start: 20120705, end: 20120806
  17. VALTREX [Concomitant]
     Indication: INFECTION PROPHYLAXIS
     Dosage: 500 MG, UNK
     Route: 065
     Dates: start: 20120601, end: 20120616
  18. VALTREX [Concomitant]
     Dosage: 500 MG, UNK
     Route: 065
     Dates: start: 20120628, end: 2012
  19. PREDONINE [Concomitant]
     Indication: PROPHYLAXIS
     Dosage: 10 DF, UNK
     Route: 065
     Dates: start: 20120603, end: 20120607
  20. PREDONINE [Concomitant]
     Dosage: 5 DF, UNK
     Route: 065
     Dates: start: 20120608, end: 20120612
  21. PREDONINE [Concomitant]
     Dosage: 2 DF, UNK
     Route: 065
     Dates: start: 20120613, end: 20120615
  22. PREDONINE [Concomitant]
     Dosage: 10 MG, INJECTION
     Route: 065
     Dates: start: 20120615, end: 20120627
  23. PREDONINE [Concomitant]
     Dosage: 1 DF, UNK
     Route: 065
     Dates: start: 20120628, end: 20120709

REACTIONS (5)
  - Febrile neutropenia [Not Recovered/Not Resolved]
  - Septic shock [Recovered/Resolved]
  - Oral herpes [Not Recovered/Not Resolved]
  - Aplastic anaemia [Fatal]
  - Rash erythematous [Not Recovered/Not Resolved]
